FAERS Safety Report 6199994-6 (Version None)
Quarter: 2009Q2

REPORT INFORMATION
  Report Type: 
  Country: None (occurrence: None)
  Receive Date: 20090522
  Receipt Date: 20090519
  Transmission Date: 20091009
  Serious: Yes (Hospitalization, Other)
  Sender: FDA-Public Use
  Company Number: DE-AVENTIS-200910308DE

PATIENT
  Age: 65 Year
  Sex: Male

DRUGS (2)
  1. ARAVA [Suspect]
     Indication: DRUG USE FOR UNKNOWN INDICATION
     Route: 048
     Dates: end: 20090101
  2. ARAVA [Suspect]
     Route: 048
     Dates: start: 20090101, end: 20090101

REACTIONS (12)
  - AGITATION [None]
  - ANOREXIA [None]
  - ANXIETY [None]
  - BLOOD PRESSURE INCREASED [None]
  - DIARRHOEA [None]
  - HALLUCINATION [None]
  - HYPERSENSITIVITY [None]
  - PANIC ATTACK [None]
  - PRURITUS [None]
  - RASH [None]
  - RASH PUSTULAR [None]
  - SLEEP DISORDER [None]
